FAERS Safety Report 5733555-5 (Version None)
Quarter: 2008Q2

REPORT INFORMATION
  Report Type: 
  Country: None (occurrence: None)
  Receive Date: 20080509
  Receipt Date: 20080509
  Transmission Date: 20081010
  Serious: Yes (Other)
  Sender: FDA-Public Use
  Company Number: None

PATIENT
  Age: 43 Year
  Sex: Female
  Weight: 86.1834 kg

DRUGS (1)
  1. HEPARIN LOCK-FLUSH [Suspect]
     Indication: OSTEOMYELITIS
     Dosage: 500 UNITS / 5 ML QD IV
     Route: 042
     Dates: start: 20080407

REACTIONS (4)
  - DYSGEUSIA [None]
  - INFUSION RELATED REACTION [None]
  - NAUSEA [None]
  - SALIVARY HYPERSECRETION [None]
